FAERS Safety Report 22603303 (Version 2)
Quarter: 2023Q2

REPORT INFORMATION
  Report Type: Spontaneous
  Country: DE (occurrence: DE)
  Receive Date: 20230615
  Receipt Date: 20230627
  Transmission Date: 20230722
  Serious: Yes (Other)
  Sender: FDA-Public Use
  Company Number: None

PATIENT
  Age: 80 Year
  Sex: Female
  Weight: 54 kg

DRUGS (2)
  1. BILASTINE [Suspect]
     Active Substance: BILASTINE
     Indication: Seasonal allergy
     Dosage: 1 DF, QD
     Dates: start: 20230527
  2. CANDESARTAN [Concomitant]
     Active Substance: CANDESARTAN
     Indication: Hypertension
     Dosage: 16 MG, QD (1 X DAILY IN THE MORNING)

REACTIONS (4)
  - Circulatory collapse [Recovering/Resolving]
  - Erythema [Recovering/Resolving]
  - Fatigue [Recovering/Resolving]
  - Dizziness [Recovering/Resolving]

NARRATIVE: CASE EVENT DATE: 20230601
